FAERS Safety Report 6923159-0 (Version None)
Quarter: 2010Q3

REPORT INFORMATION
  Report Type: 
  Country: None (occurrence: None)
  Receive Date: 20100813
  Receipt Date: 20100805
  Transmission Date: 20110219
  Serious: Yes (Other)
  Sender: FDA-Public Use
  Company Number: TN-ASTRAZENECA-2010SE36649

PATIENT
  Age: 81 Year
  Sex: Female

DRUGS (1)
  1. LIDOCAINE [Suspect]
     Indication: LOCAL ANAESTHESIA

REACTIONS (3)
  - DRUG HYPERSENSITIVITY [None]
  - SKIN NECROSIS [None]
  - SYNCOPE [None]
